FAERS Safety Report 9458242 (Version 1)
Quarter: 2013Q3

REPORT INFORMATION
  Report Type: Report from Study
  Country: DE (occurrence: DE)
  Receive Date: 20130814
  Receipt Date: 20130814
  Transmission Date: 20140515
  Serious: Yes (Other)
  Sender: FDA-Public Use
  Company Number: DE-SANOFI-AVENTIS-2013SA080231

PATIENT
  Age: 67 Year
  Sex: Female
  Weight: 66 kg

DRUGS (4)
  1. MULTAQ [Suspect]
     Indication: ATRIAL FIBRILLATION
     Route: 065
     Dates: start: 201204, end: 2013
  2. PLATELET AGGREGATION INHIBITORS [Concomitant]
     Indication: THROMBOSIS PROPHYLAXIS
     Dates: start: 20120804
  3. IRBESARTAN [Concomitant]
     Indication: PRODUCT USED FOR UNKNOWN INDICATION
  4. PROTEIN C (COAGULATION INHIBITOR)/FACTOR X (STUART PROWER FACTOR)/FACTOR VII (PROCONVERTIN)/FACTOR I [Concomitant]
     Indication: THROMBOSIS PROPHYLAXIS
     Dates: start: 20130708

REACTIONS (1)
  - Atrial fibrillation [Unknown]
